FAERS Safety Report 4300354-0 (Version None)
Quarter: 2004Q1

REPORT INFORMATION
  Report Type: 
  Country: None (occurrence: None)
  Receive Date: 20040220
  Receipt Date: 20030122
  Transmission Date: 20041129
  Serious: Yes (Death)
  Sender: FDA-Public Use
  Company Number: US-GLAXOSMITHKLINE-A0393610A

PATIENT
  Age: 23 Year
  Sex: Male

DRUGS (2)
  1. LAMICTAL [Suspect]
     Indication: EPILEPSY
     Dosage: 300MG PER DAY
     Route: 048
     Dates: start: 20020501, end: 20030101
  2. NO CONCURRENT MEDICATION [Concomitant]

REACTIONS (4)
  - APLASIA PURE RED CELL [None]
  - BONE MARROW DEPRESSION [None]
  - DEATH [None]
  - HAEMATOCRIT DECREASED [None]
